FAERS Safety Report 5663201-0 (Version None)
Quarter: 2008Q1

REPORT INFORMATION
  Report Type: 
  Country: None (occurrence: None)
  Receive Date: 20080313
  Receipt Date: 20080303
  Transmission Date: 20080703
  Serious: Yes (Hospitalization)
  Sender: FDA-Public Use
  Company Number: JP-ROCHE-548886

PATIENT
  Age: 33 Year
  Sex: Male

DRUGS (2)
  1. VALGANCICLOVIR HCL [Suspect]
     Indication: CYTOMEGALOVIRUS INFECTION
     Route: 048
  2. TACROLIMUS HYDRATE [Concomitant]

REACTIONS (1)
  - MENTAL DISORDER [None]
